FAERS Safety Report 8916916 (Version 2)
Quarter: 2012Q4

REPORT INFORMATION
  Report Type: Report from Study
  Country: NL (occurrence: NL)
  Receive Date: 20121120
  Receipt Date: 20121126
  Transmission Date: 20130627
  Serious: Yes (Death, Hospitalization)
  Sender: FDA-Public Use
  Company Number: NL-CELGENEUS-114-21880-12111784

PATIENT
  Age: 69 Year
  Sex: Female
  Weight: 74 kg

DRUGS (4)
  1. REVLIMID [Suspect]
     Indication: FOLLICULAR B-CELL NON-HODGKIN^S LYMPHOMA
     Dosage: 10 Milligram
     Route: 048
     Dates: start: 20120921, end: 20121003
  2. RITUXIMAB [Suspect]
     Indication: FOLLICULAR B-CELL NON-HODGKIN^S LYMPHOMA
     Route: 041
     Dates: start: 20120919, end: 20120919
  3. BENDAMUSTINE [Suspect]
     Indication: FOLLICULAR B-CELL NON-HODGKIN^S LYMPHOMA
     Route: 041
     Dates: start: 20120919, end: 20120920
  4. CETIRIZINE [Concomitant]
     Indication: EXANTHEMA
     Route: 048
     Dates: start: 20121002, end: 20121017

REACTIONS (2)
  - Myocardial infarction [Fatal]
  - Atypical pneumonia [Recovered/Resolved]
